FAERS Safety Report 12814510 (Version 1)
Quarter: 2016Q4

REPORT INFORMATION
  Report Type: Report from Study
  Country: US (occurrence: US)
  Receive Date: 20161006
  Receipt Date: 20161006
  Transmission Date: 20170207
  Serious: No
  Sender: FDA-Public Use
  Company Number: US-AMGEN-USASL2016094844

PATIENT
  Age: 66 Year
  Sex: Female

DRUGS (2)
  1. PROLIA [Suspect]
     Active Substance: DENOSUMAB
     Indication: OSTEOPOROSIS POSTMENOPAUSAL
     Dosage: 60 MG (IN 1 ML), ONCE IN A YEAR
     Route: 065
     Dates: start: 201507
  2. CALCIUM [Concomitant]
     Active Substance: CALCIUM

REACTIONS (2)
  - Off label use [Unknown]
  - Blood calcium increased [Unknown]

NARRATIVE: CASE EVENT DATE: 201606
